APPROVED DRUG PRODUCT: BISMUTH SUBSALICYLATE, METRONIDAZOLE AND TETRACYCLINE HYDROCHLORIDE
Active Ingredient: BISMUTH SUBSALICYLATE; METRONIDAZOLE; TETRACYCLINE HYDROCHLORIDE
Strength: 262.4MG, N/A, N/A;N/A, 250MG, N/A;N/A, N/A, 500MG
Dosage Form/Route: TABLET, CHEWABLE, TABLET, CAPSULE;ORAL
Application: A202584 | Product #001
Applicant: AILEX PHARMACEUTICALS LLC
Approved: Nov 30, 2018 | RLD: No | RS: Yes | Type: RX